FAERS Safety Report 22325157 (Version 3)
Quarter: 2024Q4

REPORT INFORMATION
  Report Type: Spontaneous
  Country: US (occurrence: US)
  Receive Date: 20230516
  Receipt Date: 20241231
  Transmission Date: 20250114
  Serious: Yes (Hospitalization)
  Sender: PFIZER
  Company Number: US-PFIZER INC-PV202300083361

PATIENT
  Age: 75 Year
  Sex: Female
  Weight: 86.621 kg

DRUGS (4)
  1. IBRANCE [Suspect]
     Active Substance: PALBOCICLIB
     Indication: Breast cancer metastatic
     Dosage: 125 MG, CYCLIC (TAKE 1 TABLET (125MG) ONCE DAILY ON DAYS 1-21, THEN 7 DAYS OFF, EACH 28-DAY CYCLE)
     Route: 048
     Dates: start: 202205
  2. IBRANCE [Suspect]
     Active Substance: PALBOCICLIB
     Indication: Breast cancer female
  3. FEMARA [Concomitant]
     Active Substance: LETROZOLE
     Indication: Breast cancer metastatic
     Dosage: UNK
     Dates: start: 20220411
  4. FEMARA [Concomitant]
     Active Substance: LETROZOLE
     Indication: Breast cancer female

REACTIONS (2)
  - White blood cell count decreased [Unknown]
  - Hypoacusis [Unknown]
